FAERS Safety Report 11047881 (Version 1)
Quarter: 2015Q2

REPORT INFORMATION
  Report Type: Spontaneous
  Country: US (occurrence: US)
  Receive Date: 20150420
  Receipt Date: 20150420
  Transmission Date: 20150821
  Serious: No
  Sender: FDA-Public Use
  Company Number: US-PFIZER INC-2015126428

PATIENT
  Age: 63 Year
  Sex: Female

DRUGS (1)
  1. IBRANCE [Suspect]
     Active Substance: PALBOCICLIB
     Indication: BREAST CANCER
     Dosage: 125 MG, DAILYB ( FOR 21 DAYS ON/7 DAYS OFF)

REACTIONS (3)
  - Oral herpes [Recovered/Resolved]
  - White blood cell count decreased [Unknown]
  - Fatigue [Unknown]
